FAERS Safety Report 7491396-5 (Version None)
Quarter: 2011Q1

REPORT INFORMATION
  Report Type: 
  Country: None (occurrence: None)
  Receive Date: 20110318
  Receipt Date: 20100301
  Transmission Date: 20110831
  Serious: Yes (Other)
  Sender: FDA-Public Use
  Company Number: 1-0310-09

PATIENT
  Age: 6 Month
  Sex: Female

DRUGS (3)
  1. CETAPHIL SOAP [Concomitant]
  2. CETAPHIL CREAM [Concomitant]
  3. DERMA-SMOOTHE/FS [Suspect]
     Indication: ECZEMA
     Dosage: TOPICAL
     Route: 061

REACTIONS (1)
  - CONDITION AGGRAVATED [None]
